FAERS Safety Report 16026050 (Version 1)
Quarter: 2019Q1

REPORT INFORMATION
  Report Type: Spontaneous
  Country: PT (occurrence: PT)
  Receive Date: 20190302
  Receipt Date: 20190302
  Transmission Date: 20190418
  Serious: Yes (Other)
  Sender: FDA-Public Use
  Company Number: PT-AUROBINDO-AUR-APL-2019-010854

PATIENT

DRUGS (3)
  1. SEPTOLETE DUO [Suspect]
     Active Substance: BENZYDAMINE HYDROCHLORIDE\CETYLPYRIDINIUM CHLORIDE
     Indication: OROPHARYNGEAL PAIN
     Dosage: 1.5 DF, SINGLE DOSE
     Route: 048
  2. SINUTAB SINUS MAXIMUM STRENGTH [Suspect]
     Active Substance: ACETAMINOPHEN\PHENYLEPHRINE HYDROCHLORIDE
     Indication: PRODUCT USED FOR UNKNOWN INDICATION
     Dosage: UNK
     Route: 065
  3. AZITHROMYCIN ANHYDROUS. [Suspect]
     Active Substance: AZITHROMYCIN ANHYDROUS
     Indication: PRODUCT USED FOR UNKNOWN INDICATION
     Dosage: UNK
     Route: 065

REACTIONS (1)
  - Dyspnoea [Recovered/Resolved]
